FAERS Safety Report 9071652 (Version 1)
Quarter: 2013Q1

REPORT INFORMATION
  Report Type: Spontaneous
  Country: US (occurrence: US)
  Receive Date: 20130206
  Receipt Date: 20130206
  Transmission Date: 20140127
  Serious: No
  Sender: FDA-Public Use
  Company Number: US-ALLERGAN-1213250US

PATIENT
  Age: 77 Year
  Sex: Female

DRUGS (10)
  1. RESTASIS? [Suspect]
     Indication: DRY EYE
     Dosage: 2 GTT, BID
     Route: 047
     Dates: start: 201208
  2. RANITIDINE [Concomitant]
     Indication: GASTROOESOPHAGEAL REFLUX DISEASE
     Dosage: 300 MG, QD
     Route: 048
  3. REFRESH TEARS [Concomitant]
     Indication: DRY EYE
     Dosage: 2 GTT, PRN
     Route: 047
  4. SYSTANE [Concomitant]
     Indication: DRY EYE
     Dosage: 2 GTT, PRN
     Route: 047
  5. PRAVASTATIN [Concomitant]
     Indication: HYPERCHOLESTEROLAEMIA
     Dosage: UNK UNK, QD
     Route: 048
  6. LOSARTAN [Concomitant]
     Indication: HYPERTENSION
     Dosage: UNK UNK, QD
     Route: 048
  7. TRIAMTERENE HCTZ [Concomitant]
     Indication: HYPERTENSION
     Dosage: UNK UNK, QD
     Route: 048
  8. VERAPAMIL [Concomitant]
     Indication: HYPERTENSION
     Dosage: UNK UNK, QD
     Route: 048
  9. LEVOXYL [Concomitant]
     Indication: THYROID HORMONE REPLACEMENT THERAPY
     Dosage: UNK UNK, QD
     Route: 048
  10. CPAP [Concomitant]
     Indication: SLEEP APNOEA SYNDROME
     Dosage: UNK

REACTIONS (3)
  - Vision blurred [Unknown]
  - Foreign body sensation in eyes [Unknown]
  - Photophobia [Unknown]
